FAERS Safety Report 7085881-8 (Version None)
Quarter: 2010Q4

REPORT INFORMATION
  Report Type: 
  Country: None (occurrence: None)
  Receive Date: 20101105
  Receipt Date: 20101028
  Transmission Date: 20110411
  Serious: Yes (Hospitalization)
  Sender: FDA-Public Use
  Company Number: DE-ROCHE-738133

PATIENT
  Sex: Male
  Weight: 103 kg

DRUGS (3)
  1. PEGINTERFERON ALFA-2A [Suspect]
     Route: 058
     Dates: start: 20100910
  2. RIBAVARIN [Suspect]
     Route: 048
  3. RIBAVARIN [Suspect]
     Route: 048
     Dates: start: 20100910

REACTIONS (1)
  - SUPRAVENTRICULAR TACHYCARDIA [None]
